FAERS Safety Report 13981011 (Version 1)
Quarter: 2017Q3

REPORT INFORMATION
  Report Type: Spontaneous
  Country: US (occurrence: US)
  Receive Date: 20170918
  Receipt Date: 20170918
  Transmission Date: 20171128
  Serious: No
  Sender: FDA-Public Use
  Company Number: US-TEVA-771925ACC

PATIENT
  Sex: Female

DRUGS (17)
  1. LEVOTHYROXINE SODIUM. [Concomitant]
     Active Substance: LEVOTHYROXINE SODIUM
  2. METRONIDAZOLE. [Concomitant]
     Active Substance: METRONIDAZOLE
  3. OCUVITE [Concomitant]
     Active Substance: VITAMINS
  4. CALCIUM WITH VITAMIN D3 [Concomitant]
     Active Substance: CALCIUM CARBONATE\CHOLECALCIFEROL
  5. MYRBETRIQ [Concomitant]
     Active Substance: MIRABEGRON
  6. ASPIRIN. [Concomitant]
     Active Substance: ASPIRIN
  7. FISH OIL [Concomitant]
     Active Substance: FISH OIL
  8. FEXOFENADINE 60 MG 425 [Suspect]
     Active Substance: FEXOFENADINE HYDROCHLORIDE
     Indication: HYPERSENSITIVITY
     Route: 048
     Dates: start: 201704, end: 2017
  9. STERILID FOAM [Concomitant]
  10. B COMPLEX WITH VITAMIN C [Concomitant]
  11. ALENDRONATE [Concomitant]
     Active Substance: ALENDRONATE SODIUM
  12. VAGIFEM LD [Concomitant]
     Active Substance: ESTRADIOL
  13. SYSTANE (HYPROMELLOSE 2910 (4000 MPA.S)) [Concomitant]
     Active Substance: HYPROMELLOSE 2910 (4000 MPA.S)
  14. ATORVASTATIN [Concomitant]
     Active Substance: ATORVASTATIN
  15. YUVAFEM [Concomitant]
     Active Substance: ESTRADIOL HEMIHYDRATE
  16. MAGNESIUM [Concomitant]
     Active Substance: MAGNESIUM
  17. RESTASIS [Concomitant]
     Active Substance: CYCLOSPORINE

REACTIONS (1)
  - Drug ineffective [Unknown]

NARRATIVE: CASE EVENT DATE: 201704
